FAERS Safety Report 7324202-X (Version None)
Quarter: 2011Q1

REPORT INFORMATION
  Report Type: 
  Country: None (occurrence: None)
  Receive Date: 20110301
  Receipt Date: 20110222
  Transmission Date: 20110831
  Serious: Yes (Death, Hospitalization, Other)
  Sender: FDA-Public Use
  Company Number: BR-PFIZER INC-2011033275

PATIENT
  Age: 63 Year
  Sex: Female

DRUGS (3)
  1. ATENOLOL [Concomitant]
     Indication: HYPERTENSION
     Dosage: UNK
  2. LIPITOR [Suspect]
     Indication: BLOOD CHOLESTEROL INCREASED
     Dosage: 20 MG, SOMETIMES 1 TABLET ONCE DAILY, SOMETIMES 1 TABLET IN ALTERNATE DAYS
     Route: 048
     Dates: start: 20100105
  3. DIOVAN [Concomitant]
     Indication: HYPERTENSION
     Dosage: UNK

REACTIONS (4)
  - PAIN [None]
  - ASTHENIA [None]
  - CEREBROVASCULAR ACCIDENT [None]
  - STENT PLACEMENT [None]
